FAERS Safety Report 8564813-7 (Version None)
Quarter: 2012Q3

REPORT INFORMATION
  Report Type: 
  Country: None (occurrence: None)
  Receive Date: 20120803
  Receipt Date: 19840612
  Transmission Date: 20120928
  Serious: No
  Sender: FDA-Public Use
  Company Number: US-009507513-84060132

PATIENT

DRUGS (2)
  1. FELDENE [Concomitant]
     Dates: start: 19830801, end: 19830820
  2. CLINORIL [Suspect]
     Indication: PAIN IN EXTREMITY
     Route: 048
     Dates: start: 19830801, end: 19830801

REACTIONS (2)
  - RASH [None]
  - PRURITUS [None]
